FAERS Safety Report 22069404 (Version 1)
Quarter: 2023Q1

REPORT INFORMATION
  Report Type: Spontaneous
  Country: US (occurrence: US)
  Receive Date: 20230307
  Receipt Date: 20230307
  Transmission Date: 20230418
  Serious: No
  Sender: FDA-Public Use
  Company Number: US-AMNEAL PHARMACEUTICALS-2022-AMRX-02299

PATIENT
  Sex: Female
  Weight: 61.224 kg

DRUGS (3)
  1. RYTARY [Suspect]
     Active Substance: CARBIDOPA\LEVODOPA
     Indication: Multiple system atrophy
     Dosage: 1 CAPSULES, 3 /DAY
     Route: 048
     Dates: start: 20220701, end: 20220722
  2. RYTARY [Suspect]
     Active Substance: CARBIDOPA\LEVODOPA
     Indication: Parkinson^s disease
     Dosage: 1 CAPSULES(145 MG), DAILY
     Route: 048
  3. NALTREXONE [Concomitant]
     Active Substance: NALTREXONE
     Indication: Anxiety
     Route: 065

REACTIONS (4)
  - Balance disorder [Recovering/Resolving]
  - Dizziness [Recovering/Resolving]
  - Headache [Recovering/Resolving]
  - Drug ineffective [Unknown]
